FAERS Safety Report 7717498-3 (Version None)
Quarter: 2011Q3

REPORT INFORMATION
  Report Type: 
  Country: None (occurrence: None)
  Receive Date: 20110830
  Receipt Date: 20110822
  Transmission Date: 20111222
  Serious: Yes (Other)
  Sender: FDA-Public Use
  Company Number: US-BAYER-2011-053512

PATIENT
  Age: 33 Year
  Sex: Female

DRUGS (4)
  1. DOXYCYCLINE [Concomitant]
     Indication: PELVIC INFLAMMATORY DISEASE
  2. AZITHROMYCIN [Concomitant]
     Indication: PELVIC INFLAMMATORY DISEASE
  3. METRONIDAZOLE [Concomitant]
     Indication: PELVIC INFLAMMATORY DISEASE
  4. MIRENA [Suspect]
     Indication: CONTRACEPTION
     Dosage: 20 MCG/24HR, CONT
     Route: 015
     Dates: start: 20090303, end: 20110524

REACTIONS (7)
  - PAIN [None]
  - MUSCLE SPASMS [None]
  - OVARIAN CYST RUPTURED [None]
  - VAGINITIS BACTERIAL [None]
  - PROCEDURAL PAIN [None]
  - DEVICE DISLOCATION [None]
  - PELVIC INFLAMMATORY DISEASE [None]
